FAERS Safety Report 6893328-7 (Version None)
Quarter: 2010Q3

REPORT INFORMATION
  Report Type: 
  Country: None (occurrence: None)
  Receive Date: 20100731
  Receipt Date: 20090817
  Transmission Date: 20110219
  Serious: Yes (Other)
  Sender: FDA-Public Use
  Company Number: US-PFIZER INC-2009196732

PATIENT
  Sex: Female
  Weight: 79.378 kg

DRUGS (16)
  1. LIPITOR [Suspect]
     Indication: BLOOD CHOLESTEROL INCREASED
     Dosage: 10 MG, 1X/DAY
  2. LIPITOR [Suspect]
     Indication: MYALGIA
  3. LAMISIL [Suspect]
     Dosage: UNK
     Dates: start: 20090324, end: 20090407
  4. BENICAR [Concomitant]
  5. METOPROLOL TARTRATE [Concomitant]
     Dosage: 12.5 MG, 2X/DAY
  6. COMBIVENT [Concomitant]
     Dosage: UNK
  7. ALPRAZOLAM [Concomitant]
     Dosage: 0.5 MG, AS NEEDED
  8. FISH OIL [Concomitant]
     Dosage: UNK
  9. OXYGEN [Concomitant]
     Dosage: UNK
  10. HALOBETASOL PROPIONATE [Concomitant]
     Dosage: UNK
  11. FLOVENT [Concomitant]
     Dosage: UNK
  12. OLUX [Concomitant]
     Dosage: UNK
  13. NYSTATIN [Concomitant]
     Dosage: 5 ML, 4X/DAY
  14. BENADRYL [Concomitant]
     Dosage: 25 MG, AS NEEDED
  15. ASPIRIN [Concomitant]
     Dosage: 81 MG, 4X/DAY
  16. DILTIAZEM [Concomitant]
     Dosage: 120 MG, 1X/DAY
     Dates: start: 20090127, end: 20090407

REACTIONS (12)
  - ALOPECIA [None]
  - BLOOD CREATINE PHOSPHOKINASE INCREASED [None]
  - CIRCUMSTANCE OR INFORMATION CAPABLE OF LEADING TO MEDICATION ERROR [None]
  - DERMATOMYOSITIS [None]
  - DRUG INTERACTION [None]
  - ERYTHEMA [None]
  - FACIAL PAIN [None]
  - HYPERTENSION [None]
  - MOUTH ULCERATION [None]
  - MYALGIA [None]
  - SEASONAL ALLERGY [None]
  - TUBERCULIN TEST POSITIVE [None]
